FAERS Safety Report 5832118-0 (Version None)
Quarter: 2008Q3

REPORT INFORMATION
  Report Type: 
  Country: None (occurrence: None)
  Receive Date: 20080731
  Receipt Date: 20080731
  Transmission Date: 20090109
  Serious: Yes (Hospitalization)
  Sender: FDA-Public Use
  Company Number: None

PATIENT
  Sex: Female
  Weight: 65.7716 kg

DRUGS (14)
  1. EPOGEN [Suspect]
     Indication: ANAEMIA
     Dosage: 5625 U QWEEK SC (057)
     Route: 058
     Dates: start: 20080604, end: 20080715
  2. LASIX [Concomitant]
  3. TOPROL-XL [Concomitant]
  4. DIGOXIN [Concomitant]
  5. LISINOPRIL [Concomitant]
  6. METFORMIN HCL [Concomitant]
  7. ASPIRIN [Concomitant]
  8. LANTUS [Concomitant]
  9. HUMALOG [Concomitant]
  10. FE [Concomitant]
  11. ZOCOR [Concomitant]
  12. AMARYL [Concomitant]
  13. NITROGLYCERIN [Concomitant]
  14. AMBIEN [Concomitant]

REACTIONS (3)
  - CHEST PAIN [None]
  - DRUG INEFFECTIVE [None]
  - PALPITATIONS [None]
